FAERS Safety Report 7081722-3 (Version None)
Quarter: 2010Q4

REPORT INFORMATION
  Report Type: 
  Country: None (occurrence: None)
  Receive Date: 20101103
  Receipt Date: 20101026
  Transmission Date: 20110411
  Serious: Yes (Death, Hospitalization, Other)
  Sender: FDA-Public Use
  Company Number: US-JNJCH-2006112611

PATIENT
  Age: 52 Year
  Sex: Female

DRUGS (6)
  1. SERTRALINE HYDROCHLORIDE [Suspect]
     Route: 048
  2. IBUPROFEN [Suspect]
     Route: 048
  3. LOXAPINE [Suspect]
     Route: 048
  4. SYMMETREL [Suspect]
     Route: 048
  5. DALMANE [Suspect]
     Route: 065
  6. ALL OTHER THERAPEUTIC PRODUCTS [Suspect]
     Route: 065

REACTIONS (6)
  - BLOOD CREATINE PHOSPHOKINASE INCREASED [None]
  - COMPLETED SUICIDE [None]
  - HEPATIC FUNCTION ABNORMAL [None]
  - HYPERAMMONAEMIA [None]
  - MULTIPLE DRUG OVERDOSE INTENTIONAL [None]
  - STATUS EPILEPTICUS [None]
